FAERS Safety Report 21255288 (Version 6)
Quarter: 2023Q2

REPORT INFORMATION
  Report Type: Report from Study
  Country: US (occurrence: US)
  Receive Date: 20220825
  Receipt Date: 20230405
  Transmission Date: 20230721
  Serious: Yes (Hospitalization, Other)
  Sender: FDA-Public Use
  Company Number: US-JNJFOC-20220714978

PATIENT
  Age: 65 Year
  Sex: Male
  Weight: 91 kg

DRUGS (32)
  1. DARATUMUMAB [Suspect]
     Active Substance: DARATUMUMAB
     Indication: Plasma cell myeloma
     Dosage: 15 ML
     Route: 058
     Dates: start: 20220621, end: 20220629
  2. BUPROPION HYDROCHLORIDE [Concomitant]
     Active Substance: BUPROPION HYDROCHLORIDE
     Indication: Depression
     Route: 048
     Dates: start: 20130101
  3. CYANOCOBALAMIN [Concomitant]
     Active Substance: CYANOCOBALAMIN
     Indication: General physical condition
     Route: 048
     Dates: start: 20130101
  4. TESTOSTERONE CYPIONATE [Concomitant]
     Active Substance: TESTOSTERONE CYPIONATE
     Indication: Hypogonadism
     Route: 030
     Dates: start: 20171218
  5. ANASTROZOLE [Concomitant]
     Active Substance: ANASTROZOLE
     Indication: Hypogonadism
     Route: 048
     Dates: start: 20190528
  6. PABRINEX [ASCORBIC ACID;NICOTINAMIDE;PYRIDOXINE HYDROCHLORIDE;RIBOFLAV [Concomitant]
     Indication: General physical condition
     Route: 048
     Dates: start: 20190709
  7. CITRULLINE [Concomitant]
     Active Substance: CITRULLINE
     Indication: Erectile dysfunction
     Route: 048
     Dates: start: 20190709
  8. ACYCLOVIR [Concomitant]
     Active Substance: ACYCLOVIR
     Indication: Infection prophylaxis
     Route: 048
     Dates: start: 20200519
  9. CBD ADREXOL [Concomitant]
     Indication: Insomnia
     Route: 048
     Dates: start: 20211001
  10. CHORIONIC GONADOTROPIN [Concomitant]
     Active Substance: CHORIOGONADOTROPIN ALFA
     Indication: Hypogonadism
     Route: 058
     Dates: start: 20220201
  11. NALOXONE [Concomitant]
     Active Substance: NALOXONE
     Indication: Overdose
     Route: 045
     Dates: start: 20220421
  12. ZINC [Concomitant]
     Active Substance: ZINC
     Indication: General physical condition
     Route: 048
     Dates: start: 20220504
  13. PRAVASTATIN SODIUM [Concomitant]
     Active Substance: PRAVASTATIN SODIUM
     Indication: Coronary artery disease
     Route: 048
     Dates: start: 20220505
  14. AMLODIPINE [Concomitant]
     Active Substance: AMLODIPINE BESYLATE
     Indication: Hypertension
     Route: 048
     Dates: start: 20220510
  15. ONDANSETRON [Concomitant]
     Active Substance: ONDANSETRON
     Indication: Nausea
     Route: 048
     Dates: start: 20220510
  16. ONDANSETRON [Concomitant]
     Active Substance: ONDANSETRON
     Indication: Vomiting
     Route: 048
     Dates: start: 20220513
  17. ONDANSETRON [Concomitant]
     Active Substance: ONDANSETRON
     Route: 048
     Dates: start: 20220516
  18. LORAZEPAM [Concomitant]
     Active Substance: LORAZEPAM
     Indication: Anxiety
     Dosage: 1-2
     Route: 048
     Dates: start: 20220526
  19. TADALAFIL [Concomitant]
     Active Substance: TADALAFIL
     Indication: Erectile dysfunction
     Route: 048
     Dates: start: 20220114
  20. XARELTO [Concomitant]
     Active Substance: RIVAROXABAN
     Indication: Thrombosis prophylaxis
     Route: 048
     Dates: start: 20220509
  21. OXYCODONE [Concomitant]
     Active Substance: OXYCODONE
     Indication: Cancer pain
     Dosage: ER
     Route: 048
     Dates: start: 20220513
  22. OXYCODONE [Concomitant]
     Active Substance: OXYCODONE
     Dosage: 1-1.5
     Route: 048
     Dates: start: 20220516
  23. TYLENOL [Concomitant]
     Active Substance: ACETAMINOPHEN
     Indication: Myalgia
     Route: 048
     Dates: start: 20220622
  24. TYLENOL [Concomitant]
     Active Substance: ACETAMINOPHEN
     Indication: Febrile neutropenia
  25. TYLENOL [Concomitant]
     Active Substance: ACETAMINOPHEN
     Indication: Headache
  26. FILGRASTIM [Concomitant]
     Active Substance: FILGRASTIM
     Indication: Neutrophil count decreased
     Dosage: DOSE ALSE REPORTED AS 0.8 ML
     Route: 058
     Dates: start: 20220629, end: 20220703
  27. MAGNESIUM [MAGNESIUM HYDROXIDE] [Concomitant]
     Indication: General physical condition
     Route: 048
     Dates: start: 20220621
  28. MAGNESIUM [MAGNESIUM HYDROXIDE] [Concomitant]
     Indication: Muscle spasms
  29. VITAMIN D3 [Concomitant]
     Active Substance: CHOLECALCIFEROL
     Indication: General physical condition
     Route: 048
     Dates: start: 20220313
  30. ENTECAVIR [Concomitant]
     Active Substance: ENTECAVIR
     Indication: Infection prophylaxis
     Route: 048
     Dates: start: 20220704
  31. DILAUDID [Concomitant]
     Active Substance: HYDROMORPHONE HYDROCHLORIDE
     Indication: Cancer pain
     Route: 042
     Dates: start: 20220704, end: 20220704
  32. DILAUDID [Concomitant]
     Active Substance: HYDROMORPHONE HYDROCHLORIDE
     Route: 042
     Dates: start: 20220704, end: 20220710

REACTIONS (3)
  - Febrile neutropenia [Recovered/Resolved]
  - Escherichia sepsis [Recovered/Resolved]
  - Streptococcal sepsis [Recovered/Resolved]

NARRATIVE: CASE EVENT DATE: 20220704
